FAERS Safety Report 22103379 (Version 2)
Quarter: 2023Q1

REPORT INFORMATION
  Report Type: Spontaneous
  Country: US (occurrence: US)
  Receive Date: 20230316
  Receipt Date: 20230322
  Transmission Date: 20230418
  Serious: Yes (Hospitalization, Other)
  Sender: FDA-Public Use
  Company Number: US-Blueprint Medicines Corporation-966

PATIENT
  Sex: Female

DRUGS (1)
  1. AYVAKIT [Suspect]
     Active Substance: AVAPRITINIB
     Indication: Gastrointestinal stromal tumour
     Route: 065

REACTIONS (7)
  - Surgery [Unknown]
  - Neoplasm malignant [Unknown]
  - Decreased activity [Unknown]
  - Crying [Unknown]
  - Unevaluable event [Unknown]
  - Back pain [Unknown]
  - Abdominal pain upper [Unknown]
